FAERS Safety Report 24386876 (Version 1)
Quarter: 2024Q4

REPORT INFORMATION
  Report Type: Report from Study
  Country: DE (occurrence: DE)
  Receive Date: 20241002
  Receipt Date: 20241002
  Transmission Date: 20250115
  Serious: Yes (Death, Other)
  Sender: ACCORD
  Company Number: DE-Accord-448877

PATIENT

DRUGS (3)
  1. CISPLATIN [Suspect]
     Active Substance: CISPLATIN
     Indication: Bile duct cancer
     Dosage: ADMINISTERED ON DAYS 1 AND 8 OF EACH CYCLE
  2. GEMCITABINE [Suspect]
     Active Substance: GEMCITABINE
     Indication: Bile duct cancer
     Dosage: ADMINISTERED ON DAYS 1 AND 8 OF EACH CYCLE
  3. DURVALUMAB [Suspect]
     Active Substance: DURVALUMAB
     Indication: Bile duct cancer
     Dosage: ON DAY 1 OF A 21-DAY CYCLE
     Route: 042

REACTIONS (2)
  - Pneumonia [Fatal]
  - Off label use [Unknown]
